FAERS Safety Report 14450422 (Version 1)
Quarter: 2018Q1

REPORT INFORMATION
  Report Type: Spontaneous
  Country: US (occurrence: US)
  Receive Date: 20180129
  Receipt Date: 20180129
  Transmission Date: 20180509
  Serious: Yes (Other)
  Sender: FDA-Public Use
  Company Number: US-CONCORDIA PHARMACEUTICALS INC.-GSH201801-000386

PATIENT

DRUGS (6)
  1. SULFONAMIDE [Suspect]
     Active Substance: UNSPECIFIED INGREDIENT
  2. ARAVA [Suspect]
     Active Substance: LEFLUNOMIDE
  3. PENICILLIN [Suspect]
     Active Substance: PENICILLIN
  4. HUMIRA [Suspect]
     Active Substance: ADALIMUMAB
  5. CEPHALOSPORIN [Suspect]
     Active Substance: UNSPECIFIED INGREDIENT
  6. PLAQUENIL [Suspect]
     Active Substance: HYDROXYCHLOROQUINE SULFATE

REACTIONS (1)
  - Drug hypersensitivity [Unknown]
